FAERS Safety Report 10924459 (Version 1)
Quarter: 2015Q1

REPORT INFORMATION
  Report Type: Spontaneous
  Country: US (occurrence: None)
  Receive Date: 20150316
  Receipt Date: 20150316
  Transmission Date: 20150721
  Serious: Yes (Other)
  Sender: FDA-Public Use
  Company Number: None

PATIENT
  Age: 63 Year
  Sex: Male
  Weight: 106.6 kg

DRUGS (3)
  1. ATORVASTATIN [Suspect]
     Active Substance: ATORVASTATIN
     Indication: BLOOD CHOLESTEROL
     Route: 048
  2. DAILY VIT [Concomitant]
  3. AMOLIPIDINE BESYALATE [Concomitant]

REACTIONS (6)
  - Abdominal discomfort [None]
  - Musculoskeletal stiffness [None]
  - Myalgia [None]
  - Bursitis [None]
  - Pain [None]
  - Sleep disorder due to general medical condition, insomnia type [None]

NARRATIVE: CASE EVENT DATE: 20150301
